FAERS Safety Report 8839240 (Version 1)
Quarter: 2012Q4

REPORT INFORMATION
  Report Type: 
  Country: ES (occurrence: ES)
  Receive Date: 20121015
  Receipt Date: 20121015
  Transmission Date: 20130627
  Serious: Yes (Hospitalization)
  Sender: FDA-Public Use
  Company Number: ES-ACCORD-014915

PATIENT
  Age: 58 Year
  Sex: Male

DRUGS (3)
  1. GEMCITABINE [Suspect]
     Indication: LARGE CELL LUNG CANCER
     Route: 042
  2. CISPLATIN [Suspect]
     Indication: LARGE CELL LUNG CANCER
     Route: 042
  3. HEPARIN [Concomitant]
     Indication: ANTICOAGULANT THERAPY

REACTIONS (3)
  - Cerebral infarction [Unknown]
  - Off label use [Unknown]
  - Ischaemic stroke [None]
